FAERS Safety Report 5209841-4 (Version None)
Quarter: 2006Q4

REPORT INFORMATION
  Report Type: 
  Country: None (occurrence: None)
  Receive Date: 20061130
  Receipt Date: 20060501
  Transmission Date: 20070319
  Serious: Yes (Other)
  Sender: FDA-Public Use
  Company Number: 2006041361

PATIENT
  Sex: Female

DRUGS (2)
  1. ZYVOX [Suspect]
     Indication: ILL-DEFINED DISORDER
     Dosage: 1200 MG (600 MG, 2 IN 1 D) ORAL
     Route: 048
     Dates: start: 20060121, end: 20060327
  2. PROVIGIL [Suspect]
     Indication: ILL-DEFINED DISORDER

REACTIONS (4)
  - ABDOMINAL PAIN [None]
  - DIARRHOEA [None]
  - DRUG INEFFECTIVE [None]
  - SEROTONIN SYNDROME [None]
